FAERS Safety Report 24423131 (Version 1)
Quarter: 2024Q4

REPORT INFORMATION
  Report Type: Spontaneous
  Country: US (occurrence: US)
  Receive Date: 20241010
  Receipt Date: 20241010
  Transmission Date: 20250114
  Serious: No
  Sender: PFIZER
  Company Number: US-PFIZER INC-202400270868

PATIENT
  Age: 71 Year
  Sex: Male

DRUGS (6)
  1. PAXLOVID [Suspect]
     Active Substance: NIRMATRELVIR\RITONAVIR
     Indication: COVID-19 treatment
     Dosage: [NIRMATRELVIR 300 MG]/[RITONAVIR 100 MG]; 2X/DAY
     Dates: start: 20240929, end: 20241003
  2. LISINOPRIL [Concomitant]
     Active Substance: LISINOPRIL
     Dosage: UNK
     Dates: start: 202001
  3. ROSUVASTATIN [Concomitant]
     Active Substance: ROSUVASTATIN
     Dosage: UNK
     Dates: start: 202001, end: 20240929
  4. LEVOTHYROXINE [Concomitant]
     Active Substance: LEVOTHYROXINE
     Dosage: UNK
     Dates: start: 202001, end: 20240929
  5. VITAMIN D NOS [Concomitant]
     Active Substance: CHOLECALCIFEROL\ERGOCALCIFEROL
     Dosage: UNK
     Dates: start: 202001, end: 20240929
  6. VITAMINS NOS [Concomitant]
     Active Substance: VITAMINS
     Dosage: UNK
     Dates: start: 202001, end: 20240929

REACTIONS (2)
  - COVID-19 [Unknown]
  - Disease recurrence [Unknown]

NARRATIVE: CASE EVENT DATE: 20241006
